FAERS Safety Report 22359564 (Version 1)
Quarter: 2023Q2

REPORT INFORMATION
  Report Type: Spontaneous
  Country: US (occurrence: None)
  Receive Date: 20230523
  Receipt Date: 20230523
  Transmission Date: 20230721
  Serious: Yes (Life-Threatening)
  Sender: FDA-Public Use
  Company Number: None

PATIENT
  Age: 65 Year
  Sex: Male
  Weight: 85.5 kg

DRUGS (1)
  1. OZEMPIC [Suspect]
     Active Substance: SEMAGLUTIDE
     Indication: Blood glucose increased
     Dosage: OTHER ROUTE : INJECTED INTO STOMACH AREA;?
     Route: 050
     Dates: start: 20220110, end: 20220605

REACTIONS (8)
  - Depressed mood [None]
  - Suicidal ideation [None]
  - Merycism [None]
  - Judgement impaired [None]
  - Anosognosia [None]
  - Disturbance in attention [None]
  - Abulia [None]
  - Paranoia [None]

NARRATIVE: CASE EVENT DATE: 20230428
